FAERS Safety Report 8154053-8 (Version None)
Quarter: 2012Q1

REPORT INFORMATION
  Report Type: 
  Country: None (occurrence: None)
  Receive Date: 20120221
  Receipt Date: 20120209
  Transmission Date: 20120608
  Serious: Yes (Hospitalization, Other)
  Sender: FDA-Public Use
  Company Number: ZA-BRISTOL-MYERS SQUIBB COMPANY-15589179

PATIENT
  Age: 58 Year
  Sex: Male

DRUGS (7)
  1. METHOTREXATE [Suspect]
     Indication: RHEUMATOID ARTHRITIS
     Dosage: 07JUN2010
     Dates: start: 20061130
  2. MELOXICAM [Concomitant]
     Dates: start: 20050715
  3. PANAFCORT [Concomitant]
     Dates: start: 20050715
  4. ABATACEPT [Suspect]
     Indication: RHEUMATOID ARTHRITIS
     Dosage: 19JAN09-06JUL09(IV+SC) 06JUL09-23JAN12 (SC;125MG/WK) LAST DOSE ON 23JAN12(THERAPY DISCONTINUED)
     Route: 058
     Dates: start: 20090119, end: 20120123
  5. TRAMADOL HCL [Concomitant]
     Dosage: TRAMAHEXAL SR
     Dates: start: 20081211
  6. OMEPRAZOLE [Concomitant]
     Dates: start: 20110115
  7. FOLIC ACID [Concomitant]
     Dates: start: 20050202

REACTIONS (4)
  - HYPERSPLENISM [None]
  - ANAEMIA [None]
  - SPLENOMEGALY [None]
  - CHRONIC MYELOMONOCYTIC LEUKAEMIA [None]
